FAERS Safety Report 8063423-8 (Version None)
Quarter: 2012Q1

REPORT INFORMATION
  Report Type: 
  Country: None (occurrence: None)
  Receive Date: 20120123
  Receipt Date: 20120117
  Transmission Date: 20120608
  Serious: Yes (Other)
  Sender: FDA-Public Use
  Company Number: US-PFIZER INC-2012014062

PATIENT
  Sex: Male
  Weight: 86.2 kg

DRUGS (4)
  1. WELLBUTRIN [Suspect]
     Dosage: 450 MG, DAILY
  2. VITAMIN D [Concomitant]
     Dosage: UNK
  3. FISH OIL [Concomitant]
     Dosage: UNK
  4. IBUPROFEN (ADVIL) [Suspect]
     Indication: HEADACHE
     Dosage: 200 MG, DAILY
     Dates: start: 20111201, end: 20120115

REACTIONS (3)
  - FAECES HARD [None]
  - ABDOMINAL PAIN UPPER [None]
  - UPPER GASTROINTESTINAL HAEMORRHAGE [None]
